FAERS Safety Report 5971037-6 (Version None)
Quarter: 2008Q4

REPORT INFORMATION
  Report Type: 
  Country: None (occurrence: None)
  Receive Date: 20081128
  Receipt Date: 20081117
  Transmission Date: 20090506
  Serious: Yes (Hospitalization, Other)
  Sender: FDA-Public Use
  Company Number: PHHY2008FR28907

PATIENT
  Sex: Male

DRUGS (10)
  1. NEORAL [Suspect]
     Indication: LIVER TRANSPLANT
     Dosage: 75 MG, BID
     Route: 048
     Dates: start: 20060101
  2. NEORAL [Suspect]
     Dosage: 65 MG, BID
     Route: 048
  3. CELLCEPT [Concomitant]
     Indication: LIVER TRANSPLANT
     Dosage: 750 MG, BID
     Route: 048
     Dates: start: 20060101
  4. ZESTORETIC [Concomitant]
     Dosage: 1 DF, QD
     Route: 048
     Dates: start: 20060101
  5. EUPRESSYL [Concomitant]
     Indication: HYPERTENSION
     Dosage: 30 MG, TID
     Route: 048
     Dates: start: 20060101
  6. ESOMEPRAZOLE MAGNESIUM [Concomitant]
     Indication: GASTRITIS
     Dosage: 40 MG, QD
     Route: 048
     Dates: start: 20060101
  7. KARDEGIC [Concomitant]
     Indication: CARDIOVASCULAR DISORDER
     Dosage: UNK
     Route: 048
     Dates: start: 20060101
  8. HEXAQUINE [Concomitant]
     Indication: MUSCLE SPASMS
     Dosage: 2 DF, BID
     Route: 048
     Dates: start: 20060101
  9. IMOVANE [Concomitant]
     Indication: INSOMNIA
     Dosage: 1 DF, QD
     Route: 048
     Dates: start: 20060101
  10. DOLIPRANE [Concomitant]
     Indication: PAIN
     Dosage: 2 DF, QD
     Route: 048
     Dates: start: 20060101

REACTIONS (13)
  - ABDOMINAL PAIN [None]
  - ABDOMINAL WALL DISORDER [None]
  - ALANINE AMINOTRANSFERASE INCREASED [None]
  - ASPARTATE AMINOTRANSFERASE INCREASED [None]
  - EXERESIS [None]
  - GAMMA-GLUTAMYLTRANSFERASE INCREASED [None]
  - LIPASE INCREASED [None]
  - LIPOMA [None]
  - LUMBAR SPINAL STENOSIS [None]
  - NEUROPATHY PERIPHERAL [None]
  - PAIN IN EXTREMITY [None]
  - PANCREATITIS ACUTE [None]
  - RENAL FAILURE [None]
